FAERS Safety Report 4775983-0 (Version None)
Quarter: 2005Q3

REPORT INFORMATION
  Report Type: 
  Country: None (occurrence: None)
  Receive Date: 20050922
  Receipt Date: 20050921
  Transmission Date: 20060218
  Serious: Yes (Death)
  Sender: FDA-Public Use
  Company Number: GB-SANOFI-SYNTHELABO-F01200501922

PATIENT
  Sex: Male

DRUGS (3)
  1. OXALIPLATIN [Suspect]
     Indication: GASTRIC CANCER
     Route: 042
     Dates: start: 20031204, end: 20031204
  2. CAPECITABINE [Suspect]
     Dosage: 500 MG/M2
     Route: 048
     Dates: start: 20031204, end: 20031204
  3. EPIRUBICIN [Suspect]
     Route: 040
     Dates: start: 20031204, end: 20031204

REACTIONS (3)
  - CEREBROVASCULAR ACCIDENT [None]
  - DISEASE PROGRESSION [None]
  - SEPSIS [None]
